FAERS Safety Report 10529736 (Version 1)
Quarter: 2014Q4

REPORT INFORMATION
  Report Type: Spontaneous
  Country: US (occurrence: None)
  Receive Date: 20141020
  Receipt Date: 20141020
  Transmission Date: 20150528
  Serious: Yes (Disabling)
  Sender: FDA-Public Use
  Company Number: None

PATIENT
  Age: 58 Year
  Sex: Male
  Weight: 124.74 kg

DRUGS (7)
  1. CARVEDILOL. [Concomitant]
     Active Substance: CARVEDILOL
  2. THERA-M [Concomitant]
  3. LOSARTAN [Concomitant]
     Active Substance: LOSARTAN
  4. SIMVASTATIN. [Concomitant]
     Active Substance: SIMVASTATIN
  5. XARELTO [Suspect]
     Active Substance: RIVAROXABAN
     Indication: ANTICOAGULANT THERAPY
     Dosage: 20 MG, 1 EVENING
     Route: 048
     Dates: end: 20140905
  6. FISH OIL [Concomitant]
     Active Substance: FISH OIL
  7. CONDROIETEN [Concomitant]

REACTIONS (7)
  - Hypoaesthesia [None]
  - Neuropathy peripheral [None]
  - Paraesthesia [None]
  - Neuralgia [None]
  - Road traffic accident [None]
  - Musculoskeletal pain [None]
  - Pain in extremity [None]

NARRATIVE: CASE EVENT DATE: 20140605
